FAERS Safety Report 8175459-7 (Version None)
Quarter: 2012Q1

REPORT INFORMATION
  Report Type: 
  Country: None (occurrence: None)
  Receive Date: 20120229
  Receipt Date: 20100406
  Transmission Date: 20120608
  Serious: Yes (Hospitalization, Other)
  Sender: FDA-Public Use
  Company Number: PHHY2010DE22569

PATIENT
  Sex: Male
  Weight: 72 kg

DRUGS (10)
  1. DIOVAN HCT [Suspect]
     Indication: ESSENTIAL HYPERTENSION
     Dosage: 160/12.5 MG/DAY
     Route: 048
     Dates: start: 20041116
  2. CALCIUM CHANNEL BLOCKERS [Concomitant]
  3. DIURETICS [Concomitant]
  4. NITROLINGUAL [Concomitant]
  5. FLUVASTATIN SODIUM [Suspect]
     Indication: LIPIDS ABNORMAL
     Dosage: 40 MG/DAY
     Route: 048
     Dates: start: 20100201
  6. ANGIOTENSIN II ANTAGONISTS [Concomitant]
  7. BISOPROLOL FUMARATE [Concomitant]
     Dosage: 1.25 MG, PER DAY
     Route: 048
  8. PLAVIX [Concomitant]
     Dosage: 75 MG, PER DAY
     Route: 048
  9. DIOVAN [Suspect]
     Indication: LABILE BLOOD PRESSURE
     Dosage: 160 MG, QD
     Route: 048
     Dates: start: 20090922
  10. ANTIHYPERTENSIVES [Concomitant]
     Dates: start: 20090310

REACTIONS (14)
  - DIZZINESS [None]
  - ANGINA PECTORIS [None]
  - ELECTROCARDIOGRAM QRS COMPLEX PROLONGED [None]
  - HYPERTENSIVE CRISIS [None]
  - ELECTROCARDIOGRAM QT PROLONGED [None]
  - BLOOD CHOLESTEROL INCREASED [None]
  - LOW DENSITY LIPOPROTEIN INCREASED [None]
  - BLOOD PRESSURE INCREASED [None]
  - HEART RATE DECREASED [None]
  - HAEMOGLOBIN DECREASED [None]
  - BLOOD CREATININE INCREASED [None]
  - HEADACHE [None]
  - TINNITUS [None]
  - LEFT VENTRICULAR HYPERTROPHY [None]
